FAERS Safety Report 8132867-8 (Version None)
Quarter: 2012Q1

REPORT INFORMATION
  Report Type: 
  Country: None (occurrence: None)
  Receive Date: 20120213
  Receipt Date: 20120203
  Transmission Date: 20120608
  Serious: Yes (Other)
  Sender: FDA-Public Use
  Company Number: FR-JNJFOC-20120203349

PATIENT

DRUGS (1)
  1. XARELTO [Suspect]
     Indication: HIP SURGERY
     Route: 065
     Dates: start: 20110101, end: 20110101

REACTIONS (1)
  - DEEP VEIN THROMBOSIS [None]
